FAERS Safety Report 9495356 (Version 2)
Quarter: 2013Q4

REPORT INFORMATION
  Report Type: Spontaneous
  Country: JP (occurrence: JP)
  Receive Date: 20130903
  Receipt Date: 20131029
  Transmission Date: 20140711
  Serious: Yes (Disabling)
  Sender: FDA-Public Use
  Company Number: JP-GLAXOSMITHKLINE-B0895354A

PATIENT
  Age: 68 Year
  Sex: Female

DRUGS (7)
  1. ARRANON [Suspect]
     Indication: T-CELL TYPE ACUTE LEUKAEMIA
     Dosage: 1600MG PER DAY
     Route: 042
     Dates: start: 20130402, end: 20130406
  2. ARRANON [Suspect]
     Indication: T-CELL TYPE ACUTE LEUKAEMIA
     Dosage: 1600MG PER DAY
     Route: 042
     Dates: start: 20130819, end: 20130823
  3. ONCOVIN [Suspect]
     Indication: T-CELL TYPE ACUTE LEUKAEMIA
     Route: 042
     Dates: start: 20130218
  4. CYLOCIDE [Suspect]
     Indication: T-CELL TYPE ACUTE LEUKAEMIA
     Dosage: 120MG PER DAY
     Route: 042
     Dates: start: 20130409, end: 20130419
  5. ENDOXAN [Concomitant]
     Indication: T-CELL TYPE ACUTE LEUKAEMIA
     Dosage: 1300MG PER DAY
     Dates: start: 20130409, end: 20130409
  6. PREDONINE [Concomitant]
     Indication: RASH
     Route: 048
     Dates: start: 20130402, end: 20130412
  7. LEUKERIN [Concomitant]
     Indication: T-CELL TYPE ACUTE LEUKAEMIA
     Dosage: 100MG PER DAY
     Dates: start: 20130409, end: 20130419

REACTIONS (10)
  - Polyneuropathy [Not Recovered/Not Resolved]
  - Hyperaesthesia [Recovered/Resolved]
  - Skin burning sensation [Recovered/Resolved]
  - Pain of skin [Recovered/Resolved]
  - Sensory disturbance [Unknown]
  - Muscular weakness [Unknown]
  - Dizziness [Unknown]
  - Muscular weakness [Unknown]
  - Fall [Unknown]
  - Coordination abnormal [Unknown]
